FAERS Safety Report 23958541 (Version 3)
Quarter: 2025Q1

REPORT INFORMATION
  Report Type: Report from Study
  Country: CA (occurrence: CA)
  Receive Date: 20240610
  Receipt Date: 20250217
  Transmission Date: 20250408
  Serious: Yes (Hospitalization)
  Sender: CSL BEHRING
  Company Number: CA-BEH-2024173450

PATIENT
  Age: 3 Year
  Sex: Female
  Weight: 16.2 kg

DRUGS (19)
  1. HIZENTRA [Suspect]
     Active Substance: HUMAN IMMUNOGLOBULIN G
     Indication: Secondary immunodeficiency
     Dosage: UNK, QW
     Route: 065
     Dates: start: 20240522
  2. HIZENTRA [Suspect]
     Active Substance: HUMAN IMMUNOGLOBULIN G
     Route: 065
     Dates: start: 202406
  3. HIZENTRA [Suspect]
     Active Substance: HUMAN IMMUNOGLOBULIN G
     Dosage: PRODUCT STRENGTH:2G, QW
     Route: 058
     Dates: start: 20240522
  4. TOCILIZUMAB [Concomitant]
     Active Substance: TOCILIZUMAB
  5. METHYLPREDNISOLONE [Concomitant]
     Active Substance: METHYLPREDNISOLONE
  6. METHOTREXATE [Concomitant]
     Active Substance: METHOTREXATE
  7. PREDNISOLONE [Concomitant]
     Active Substance: PREDNISOLONE
  8. TOFACITINIB [Concomitant]
     Active Substance: TOFACITINIB
  9. NEXIUM [Concomitant]
     Active Substance: ESOMEPRAZOLE MAGNESIUM
  10. CYPROHEPTADINE HYDROCHLORIDE [Concomitant]
     Active Substance: CYPROHEPTADINE HYDROCHLORIDE
  11. ZOFRAN [Concomitant]
     Active Substance: ONDANSETRON HYDROCHLORIDE
  12. AZITHROMYCIN [Concomitant]
     Active Substance: AZITHROMYCIN
  13. SEPTRA DS [Concomitant]
     Active Substance: SULFAMETHOXAZOLE\TRIMETHOPRIM
  14. FOLIC ACID [Concomitant]
     Active Substance: FOLIC ACID
  15. VITAMIN D NOS [Concomitant]
     Active Substance: CHOLECALCIFEROL\ERGOCALCIFEROL
  16. POLYETHYLENE GLYCOL 3350 [Concomitant]
     Active Substance: POLYETHYLENE GLYCOL 3350
  17. Reactin [Concomitant]
  18. NAPROXEN [Concomitant]
     Active Substance: NAPROXEN
  19. EMLA [Concomitant]
     Active Substance: LIDOCAINE\PRILOCAINE

REACTIONS (14)
  - Decreased appetite [Unknown]
  - Weight decreased [Unknown]
  - Fatigue [Unknown]
  - Pain [Unknown]
  - Pain in extremity [Unknown]
  - Neck pain [Unknown]
  - Irritability [Unknown]
  - Cough [Unknown]
  - Dyspnoea [Unknown]
  - Rash [Unknown]
  - Vomiting [Unknown]
  - Agitation [Unknown]
  - Injection site oedema [Unknown]
  - Injection site erythema [Unknown]

NARRATIVE: CASE EVENT DATE: 20240601
